FAERS Safety Report 22362039 (Version 3)
Quarter: 2024Q3

REPORT INFORMATION
  Report Type: Spontaneous
  Country: US (occurrence: US)
  Receive Date: 20230524
  Receipt Date: 20240830
  Transmission Date: 20241017
  Serious: Yes (Hospitalization)
  Sender: PFIZER
  Company Number: US-PFIZER INC-202300197242

PATIENT
  Age: 74 Year
  Sex: Male
  Weight: 60.33 kg

DRUGS (2)
  1. OXBRYTA [Suspect]
     Active Substance: VOXELOTOR
     Indication: Sickle cell disease
     Dosage: 1500 MG, 1X/DAY
     Route: 048
  2. OXBRYTA [Suspect]
     Active Substance: VOXELOTOR
     Dosage: 1500 MG, 1X/DAY (3 TABLETS, ONCE DAILY, ORALLY)
     Route: 048
     Dates: start: 20220524

REACTIONS (2)
  - Liver disorder [Unknown]
  - Drug ineffective [Unknown]
